FAERS Safety Report 12700842 (Version 1)
Quarter: 2016Q3

REPORT INFORMATION
  Report Type: Spontaneous
  Country: US (occurrence: None)
  Receive Date: 20160830
  Receipt Date: 20160830
  Transmission Date: 20161109
  Serious: Yes (Death)
  Sender: FDA-Public Use
  Company Number: None

PATIENT
  Age: 73 Year
  Sex: Male
  Weight: 60.1 kg

DRUGS (2)
  1. TAXOL [Suspect]
     Active Substance: PACLITAXEL
     Dates: end: 20160628
  2. CARBOPLATIN. [Suspect]
     Active Substance: CARBOPLATIN
     Dates: end: 20160628

REACTIONS (9)
  - Cough [None]
  - Disease progression [None]
  - Oxygen saturation decreased [None]
  - Dyspnoea [None]
  - Tachycardia [None]
  - Cyanosis [None]
  - Hyperhidrosis [None]
  - Hypoxia [None]
  - Dizziness [None]

NARRATIVE: CASE EVENT DATE: 20160629
